FAERS Safety Report 9574845 (Version 1)
Quarter: 2013Q4

REPORT INFORMATION
  Report Type: Spontaneous
  Country: US (occurrence: US)
  Receive Date: 20131001
  Receipt Date: 20131001
  Transmission Date: 20140711
  Serious: Yes (Death, Other)
  Sender: FDA-Public Use
  Company Number: US-ASTRAZENECA-2013SE72762

PATIENT
  Age: 13882 Day
  Sex: Female
  Weight: 127 kg

DRUGS (3)
  1. SEROQUEL XR [Suspect]
     Indication: BIPOLAR DISORDER
     Dosage: 50-25 MG DAILY
     Route: 048
     Dates: start: 2007
  2. STEROID INJECTIONS [Concomitant]
     Indication: BACK PAIN
     Dosage: UNKNOWN DOSE THREE TIMES A WEEK
  3. UNSPECIFIED MEDICATIONS [Concomitant]

REACTIONS (4)
  - Myocardial infarction [Fatal]
  - Convulsion [Unknown]
  - Back pain [Unknown]
  - Weight increased [Unknown]
